FAERS Safety Report 16007474 (Version 1)
Quarter: 2019Q1

REPORT INFORMATION
  Report Type: Spontaneous
  Country: US (occurrence: US)
  Receive Date: 20190226
  Receipt Date: 20190226
  Transmission Date: 20190418
  Serious: No
  Sender: FDA-Public Use
  Company Number: US-IGSA-SR10007238

PATIENT
  Age: 64 Year
  Sex: Female
  Weight: 52 kg

DRUGS (6)
  1. PROLASTIN-C LIQUID [Suspect]
     Active Substance: .ALPHA.1-PROTEINASE INHIBITOR HUMAN
     Indication: ALPHA-1 ANTI-TRYPSIN DEFICIENCY
     Dosage: 3120 MG, Q.WK.
     Route: 042
     Dates: start: 20181025
  2. METHOCARBAMOL. [Concomitant]
     Active Substance: METHOCARBAMOL
  3. DUONEB [Concomitant]
     Active Substance: ALBUTEROL SULFATE\IPRATROPIUM BROMIDE
  4. SYMBICORT [Concomitant]
     Active Substance: BUDESONIDE\FORMOTEROL FUMARATE DIHYDRATE
  5. ATIVAN [Concomitant]
     Active Substance: LORAZEPAM
  6. FENTANYL. [Concomitant]
     Active Substance: FENTANYL

REACTIONS (3)
  - Flushing [Recovered/Resolved]
  - Headache [Recovered/Resolved]
  - Nausea [Recovered/Resolved]

NARRATIVE: CASE EVENT DATE: 20181025
